FAERS Safety Report 4452037-4 (Version None)
Quarter: 2004Q3

REPORT INFORMATION
  Report Type: 
  Country: None (occurrence: None)
  Receive Date: 20040915
  Receipt Date: 20040915
  Transmission Date: 20050211
  Serious: Yes (Hospitalization)
  Sender: FDA-Public Use
  Company Number: None

PATIENT
  Age: 62 Year
  Sex: Female
  Weight: 77.1 kg

DRUGS (13)
  1. NAPROSYN [Suspect]
     Indication: ABDOMINAL PAIN
     Dosage: 500 PO BID
     Route: 048
  2. ACTOS [Concomitant]
  3. LANTUS [Concomitant]
  4. HYDROCHLOROTHIAZIDE [Concomitant]
  5. PLAVIX [Concomitant]
  6. GLIPIZIDE [Concomitant]
  7. ADVAIR DISKUS 100/50 [Concomitant]
  8. COMBIVENT [Concomitant]
  9. ASPIRIN [Concomitant]
  10. TOPROL-XL [Concomitant]
  11. ALTACE [Concomitant]
  12. ZOCOR [Concomitant]
  13. IRON [Concomitant]

REACTIONS (3)
  - CHEST PAIN [None]
  - DYSPNOEA [None]
  - GASTRITIS EROSIVE [None]
